FAERS Safety Report 22246353 (Version 1)
Quarter: 2023Q2

REPORT INFORMATION
  Report Type: Spontaneous
  Country: AE (occurrence: AE)
  Receive Date: 20230424
  Receipt Date: 20230424
  Transmission Date: 20230722
  Serious: Yes (Hospitalization, Other)
  Sender: FDA-Public Use
  Company Number: AE-PFIZER INC-PV202300072392

PATIENT

DRUGS (1)
  1. LORLATINIB [Suspect]
     Active Substance: LORLATINIB
     Dosage: UNK
     Dates: start: 202212

REACTIONS (4)
  - Pulmonary congestion [Unknown]
  - Dyspnoea [Unknown]
  - Dermabrasion [Unknown]
  - Confusional state [Unknown]
